FAERS Safety Report 19977925 (Version 1)
Quarter: 2021Q4

REPORT INFORMATION
  Report Type: Spontaneous
  Country: US (occurrence: US)
  Receive Date: 20211020
  Receipt Date: 20211020
  Transmission Date: 20220304
  Serious: Yes (unspecified)
  Sender: FDA-Public Use
  Company Number: None

PATIENT
  Age: 34 Year
  Sex: Female
  Weight: 38.25 kg

DRUGS (23)
  1. LANSOPRAZOLE [Suspect]
     Active Substance: LANSOPRAZOLE
     Indication: Barrett^s oesophagus
     Dosage: ?          QUANTITY:1 TABLET(S);OTHER ROUTE:VIA JEJUNOSTOMY
  2. LANSOPRAZOLE [Suspect]
     Active Substance: LANSOPRAZOLE
     Indication: Hiatus hernia
  3. LANSOPRAZOLE [Concomitant]
     Active Substance: LANSOPRAZOLE
  4. KEPPRA (LEVATIRACETUM) [Concomitant]
  5. TOPIRAMATE [Concomitant]
     Active Substance: TOPIRAMATE
  6. LORATADINE [Concomitant]
     Active Substance: LORATADINE
  7. BROMOCRIPTINE [Concomitant]
     Active Substance: BROMOCRIPTINE
  8. PRASTERONE [Concomitant]
     Active Substance: PRASTERONE
  9. PREGNENOLONE [Concomitant]
     Active Substance: PREGNENOLONE
  10. NORETHIN ACETATE [Concomitant]
  11. DIAZEPAM (PRN) [Concomitant]
  12. METHOCARBAMOL (PRN) [Concomitant]
  13. KANGAROO FEEDING PUMP RUN AT 100ML/HOUR [Concomitant]
  14. NESTLE COMPLEAT FEEDING FORMULA [Concomitant]
  15. S/P KENALOG SHOT 6 MONTHS AGO [Concomitant]
  16. S/P MODERNA COVID 19 VACCINATIONS [Concomitant]
  17. ANNUAL FLU SHOTS [Concomitant]
  18. VITAMIN D NOS [Concomitant]
     Active Substance: VITAMIN D NOS
  19. CO-ENZYME Q-10 SUPPLEMENT [Concomitant]
  20. TYLENOL [Concomitant]
     Active Substance: ACETAMINOPHEN
  21. SUDAFED [Concomitant]
     Active Substance: PSEUDOEPHEDRINE HYDROCHLORIDE
  22. AZO [Concomitant]
     Active Substance: PHENAZOPYRIDINE HYDROCHLORIDE
  23. OTHER OTCS, PRN [Concomitant]

REACTIONS (4)
  - Device occlusion [None]
  - Product quality issue [None]
  - Product solubility abnormal [None]
  - Product packaging difficult to open [None]

NARRATIVE: CASE EVENT DATE: 20211019
